FAERS Safety Report 9215610 (Version 1)
Quarter: 2013Q2

REPORT INFORMATION
  Report Type: Spontaneous
  Country: BR (occurrence: BR)
  Receive Date: 20130408
  Receipt Date: 20130408
  Transmission Date: 20140414
  Serious: Yes (Other)
  Sender: FDA-Public Use
  Company Number: BR-AMGEN-BRASP2013023481

PATIENT
  Age: 33 Year
  Sex: Male
  Weight: 84 kg

DRUGS (4)
  1. ENBREL [Suspect]
     Indication: ANKYLOSING SPONDYLITIS
     Dosage: 50 MG, ONCE WEEKLY
     Route: 058
     Dates: start: 201212, end: 201302
  2. ENBREL [Suspect]
     Dosage: 25 MG, UNK
     Dates: start: 201302
  3. EFEXOR XL [Concomitant]
     Dosage: UNK
  4. FRONTAL XR [Concomitant]
     Dosage: UNK

REACTIONS (1)
  - Panic disorder [Recovered/Resolved]
